FAERS Safety Report 15760545 (Version 5)
Quarter: 2019Q3

REPORT INFORMATION
  Report Type: Spontaneous
  Country: US (occurrence: US)
  Receive Date: 20181226
  Receipt Date: 20190709
  Transmission Date: 20191004
  Serious: No
  Sender: FDA-Public Use
  Company Number: US-PFIZER INC-2018526909

PATIENT
  Age: 42 Year
  Sex: Female
  Weight: 82 kg

DRUGS (10)
  1. DOCETAXEL. [Suspect]
     Active Substance: DOCETAXEL
     Dosage: 115.8 MG, CYCLIC (06 CYCLES, EVERY THREE WEEKS)
     Dates: start: 20121026
  2. NEOSAR [Concomitant]
     Active Substance: CYCLOPHOSPHAMIDE
     Indication: CHEMOTHERAPY
     Dosage: UNK
  3. DOCETAXEL. [Suspect]
     Active Substance: DOCETAXEL
     Indication: BREAST CANCER FEMALE
     Dosage: 80 MG, CYCLIC (EVERY THREE WEEKS, 06 CYCLES)
     Dates: start: 20120727, end: 20121115
  4. DOCETAXEL. [Suspect]
     Active Substance: DOCETAXEL
     Indication: BREAST CANCER FEMALE
     Dosage: 144.8 MG, CYCLIC (06 CYCLES, EVERY THREE WEEKS)
     Dates: start: 20120727
  5. CYTOXAN [Concomitant]
     Active Substance: CYCLOPHOSPHAMIDE
     Indication: CHEMOTHERAPY
     Dosage: UNK
  6. DOCETAXEL. [Suspect]
     Active Substance: DOCETAXEL
     Dosage: 115.8 MG, CYCLIC (06 CYCLES, EVERY THREE WEEKS)
     Dates: start: 20121005
  7. DOCETAXEL. [Suspect]
     Active Substance: DOCETAXEL
     Dosage: 115.8 MG, CYCLIC (06 CYCLES, EVERY THREE WEEKS)
     Dates: start: 20121115
  8. DOCETAXEL. [Suspect]
     Active Substance: DOCETAXEL
     Dosage: 144.8 MG, CYCLIC (06 CYCLES, EVERY THREE WEEKS)
     Dates: start: 20120817
  9. DOCEFREZ [Suspect]
     Active Substance: DOCETAXEL ANHYDROUS
     Indication: BREAST CANCER FEMALE
     Dosage: 80 MG, CYCLIC (EVERY THREE WEEKS, 06 CYCLES)
     Dates: start: 20120727, end: 20121115
  10. DOCETAXEL. [Suspect]
     Active Substance: DOCETAXEL
     Dosage: 144.8 MG, CYCLIC (06 CYCLES, EVERY THREE WEEKS)
     Dates: start: 20120907

REACTIONS (5)
  - Hair colour changes [Not Recovered/Not Resolved]
  - Hair disorder [Not Recovered/Not Resolved]
  - Madarosis [Not Recovered/Not Resolved]
  - Hair texture abnormal [Not Recovered/Not Resolved]
  - Alopecia [Not Recovered/Not Resolved]

NARRATIVE: CASE EVENT DATE: 201305
